FAERS Safety Report 10146693 (Version 2)
Quarter: 2014Q2

REPORT INFORMATION
  Report Type: Spontaneous
  Country: US (occurrence: US)
  Receive Date: 20140501
  Receipt Date: 20140623
  Transmission Date: 20141212
  Serious: No
  Sender: FDA-Public Use
  Company Number: US-PFIZER INC-2014116522

PATIENT
  Age: 40 Year
  Sex: Female
  Weight: 77.1 kg

DRUGS (4)
  1. REVATIO [Suspect]
     Indication: PULMONARY HYPERTENSION
     Dosage: 20 MG, 3X/DAY
  2. REVATIO [Suspect]
     Dosage: 20 MG, 2X/DAY
     Dates: start: 201403
  3. LETAIRIS [Concomitant]
     Indication: PULMONARY HYPERTENSION
     Dosage: 5 MG, DAILY
  4. DIGOXIN [Concomitant]
     Indication: PULMONARY HYPERTENSION
     Dosage: 125 UG, DAILY

REACTIONS (3)
  - Intentional product misuse [Recovered/Resolved]
  - Malaise [Recovered/Resolved]
  - Feeling abnormal [Recovered/Resolved]
